FAERS Safety Report 18542501 (Version 49)
Quarter: 2025Q3

REPORT INFORMATION
  Report Type: Report from Study
  Country: CO (occurrence: CO)
  Receive Date: 20201124
  Receipt Date: 20250917
  Transmission Date: 20251021
  Serious: Yes (Hospitalization, Other)
  Sender: TAKEDA
  Company Number: CO-SHIRE-CO202026803AA

PATIENT
  Age: 22 Year
  Sex: Female
  Weight: 56.998 kg

DRUGS (12)
  1. VELAGLUCERASE ALFA [Suspect]
     Active Substance: VELAGLUCERASE ALFA
     Indication: Gaucher^s disease
     Dosage: 3600 INTERNATIONAL UNIT, 2/MONTH
     Dates: start: 20160217
  2. VELAGLUCERASE ALFA [Suspect]
     Active Substance: VELAGLUCERASE ALFA
     Indication: Prophylaxis
     Dosage: 3600 INTERNATIONAL UNIT, Q2WEEKS
     Dates: start: 20170301
  3. VELAGLUCERASE ALFA [Suspect]
     Active Substance: VELAGLUCERASE ALFA
     Dosage: 3600 INTERNATIONAL UNIT, 2/MONTH
  4. VELAGLUCERASE ALFA [Suspect]
     Active Substance: VELAGLUCERASE ALFA
     Dosage: 4400 INTERNATIONAL UNIT, Q2WEEKS
  5. VELAGLUCERASE ALFA [Suspect]
     Active Substance: VELAGLUCERASE ALFA
     Dosage: 4400 INTERNATIONAL UNIT, Q2WEEKS
  6. VELAGLUCERASE ALFA [Suspect]
     Active Substance: VELAGLUCERASE ALFA
     Dosage: 3900 INTERNATIONAL UNIT, Q2WEEKS
  7. VELAGLUCERASE ALFA [Suspect]
     Active Substance: VELAGLUCERASE ALFA
     Dosage: 3900 INTERNATIONAL UNIT, 2/MONTH
  8. VELAGLUCERASE ALFA [Suspect]
     Active Substance: VELAGLUCERASE ALFA
     Dosage: 3600 INTERNATIONAL UNIT, 1/WEEK
  9. VELAGLUCERASE ALFA [Suspect]
     Active Substance: VELAGLUCERASE ALFA
     Dosage: 3600 INTERNATIONAL UNIT, 2/WEEK
  10. VELAGLUCERASE ALFA [Suspect]
     Active Substance: VELAGLUCERASE ALFA
  11. VELAGLUCERASE ALFA [Suspect]
     Active Substance: VELAGLUCERASE ALFA
     Dosage: 3600 INTERNATIONAL UNIT, 2/MONTH
  12. REPLAGAL [Suspect]
     Active Substance: AGALSIDASE ALFA
     Indication: Gaucher^s disease

REACTIONS (40)
  - COVID-19 [Recovering/Resolving]
  - Road traffic accident [Recovering/Resolving]
  - Upper limb fracture [Recovering/Resolving]
  - Dysphagia [Recovering/Resolving]
  - Oropharyngeal pain [Unknown]
  - Obstruction [Unknown]
  - Hand fracture [Unknown]
  - Chills [Unknown]
  - Pain [Not Recovered/Not Resolved]
  - Weight increased [Unknown]
  - Fall [Recovering/Resolving]
  - Influenza [Recovering/Resolving]
  - Rhinorrhoea [Recovering/Resolving]
  - Frequent bowel movements [Unknown]
  - Respiratory symptom [Recovering/Resolving]
  - Feeding disorder [Unknown]
  - Cough [Unknown]
  - Pain in extremity [Unknown]
  - Nasal congestion [Recovering/Resolving]
  - Malaise [Recovering/Resolving]
  - Epistaxis [Unknown]
  - Product prescribing issue [Unknown]
  - Incorrect dose administered [Unknown]
  - Product use issue [Unknown]
  - Respiratory disorder [Unknown]
  - Dizziness [Recovering/Resolving]
  - Pyrexia [Recovering/Resolving]
  - Arthralgia [Unknown]
  - Back pain [Recovering/Resolving]
  - Vomiting [Recovering/Resolving]
  - Headache [Recovering/Resolving]
  - Bone pain [Unknown]
  - Diarrhoea [Recovering/Resolving]
  - Product dose omission issue [Unknown]
  - Influenza like illness [Unknown]
  - Chest pain [Recovering/Resolving]
  - Treatment failure [Unknown]
  - Inappropriate schedule of product administration [Recovering/Resolving]
  - Abdominal pain upper [Recovering/Resolving]
  - Nausea [Recovering/Resolving]

NARRATIVE: CASE EVENT DATE: 20200813
